FAERS Safety Report 9648501 (Version 1)
Quarter: 2013Q4

REPORT INFORMATION
  Report Type: Spontaneous
  Country: CA (occurrence: CA)
  Receive Date: 20131028
  Receipt Date: 20131028
  Transmission Date: 20140711
  Serious: Yes (Hospitalization)
  Sender: FDA-Public Use
  Company Number: CA-AMGEN-CANSP2013074555

PATIENT
  Age: 63 Year
  Sex: Female

DRUGS (1)
  1. PROLIA [Suspect]
     Indication: OSTEOPOROSIS POSTMENOPAUSAL
     Dosage: 60 MG, Q6MO
     Route: 058
     Dates: start: 20131018

REACTIONS (6)
  - Loss of consciousness [Unknown]
  - Hyperhidrosis [Unknown]
  - Nausea [Unknown]
  - Arrhythmia [Unknown]
  - Pain [Unknown]
  - Feeling hot [Unknown]
